FAERS Safety Report 20912454 (Version 1)
Quarter: 2022Q2

REPORT INFORMATION
  Report Type: Spontaneous
  Country: US (occurrence: None)
  Receive Date: 20220603
  Receipt Date: 20220603
  Transmission Date: 20220721
  Serious: Yes (Other)
  Sender: FDA-Public Use
  Company Number: None

PATIENT
  Age: 60 Year
  Sex: Female

DRUGS (1)
  1. NEBIVOLOL [Suspect]
     Active Substance: NEBIVOLOL
     Indication: Hypertension

REACTIONS (4)
  - Headache [None]
  - Nausea [None]
  - Vision blurred [None]
  - Blood pressure inadequately controlled [None]

NARRATIVE: CASE EVENT DATE: 20220318
